FAERS Safety Report 14912366 (Version 1)
Quarter: 2018Q2

REPORT INFORMATION
  Report Type: Spontaneous
  Country: US (occurrence: US)
  Receive Date: 20180501
  Receipt Date: 20180501
  Transmission Date: 20180711
  Serious: Yes (Death)
  Sender: FDA-Public Use
  Company Number: None

PATIENT
  Age: 26 Year
  Sex: Female
  Weight: 70.2 kg

DRUGS (4)
  1. GABAPENTINE [Suspect]
     Active Substance: GABAPENTIN
     Indication: ANXIETY
  2. LOPERAMIDE [Suspect]
     Active Substance: LOPERAMIDE
     Indication: DIARRHOEA
  3. LOPERAMIDE [Suspect]
     Active Substance: LOPERAMIDE
     Indication: IRRITABLE BOWEL SYNDROME
  4. GABAPENTINE [Suspect]
     Active Substance: GABAPENTIN
     Indication: DEPRESSION

REACTIONS (5)
  - Toxicity to various agents [None]
  - Unresponsive to stimuli [None]
  - Snoring [None]
  - Accidental death [None]
  - Somnolence [None]

NARRATIVE: CASE EVENT DATE: 20180202
